FAERS Safety Report 5404642-6 (Version None)
Quarter: 2007Q3

REPORT INFORMATION
  Report Type: 
  Country: None (occurrence: None)
  Receive Date: 20070802
  Receipt Date: 20070723
  Transmission Date: 20080115
  Serious: Yes (Other)
  Sender: FDA-Public Use
  Company Number: JP-MERCK-0707USA02705

PATIENT
  Age: 71 Year
  Sex: Male

DRUGS (2)
  1. TRYPTANOL [Suspect]
     Indication: POST HERPETIC NEURALGIA
     Route: 048
     Dates: start: 20060721, end: 20060920
  2. [COMPOSITION UNSPECIFIED] [Concomitant]
     Route: 048

REACTIONS (1)
  - RAPID EYE MOVEMENTS SLEEP ABNORMAL [None]
